FAERS Safety Report 13337879 (Version 3)
Quarter: 2017Q2

REPORT INFORMATION
  Report Type: Spontaneous
  Country: PL (occurrence: PL)
  Receive Date: 20170315
  Receipt Date: 20170404
  Transmission Date: 20170830
  Serious: Yes (Other)
  Sender: FDA-Public Use
  Company Number: PL-BIOGEN-2017BI00371205

PATIENT
  Age: 53 Year
  Sex: Female

DRUGS (1)
  1. TECFIDERA [Suspect]
     Active Substance: DIMETHYL FUMARATE
     Indication: MULTIPLE SCLEROSIS
     Dosage: MAINTENANCE DOSE
     Route: 048
     Dates: start: 20161003, end: 20170307

REACTIONS (5)
  - Genital herpes zoster [Not Recovered/Not Resolved]
  - Dyschezia [Unknown]
  - Paraesthesia [Unknown]
  - Leukocytosis [Unknown]
  - Dysuria [Unknown]

NARRATIVE: CASE EVENT DATE: 20170305
